FAERS Safety Report 7157285-0 (Version None)
Quarter: 2010Q4

REPORT INFORMATION
  Report Type: 
  Country: None (occurrence: None)
  Receive Date: 20101214
  Receipt Date: 20101214
  Transmission Date: 20110411
  Serious: Yes (Other)
  Sender: FDA-Public Use
  Company Number: A0898536A

PATIENT
  Age: 74 Year
  Sex: Female

DRUGS (3)
  1. ALLI [Suspect]
     Indication: WEIGHT LOSS DIET
     Route: 048
     Dates: start: 20070101, end: 20100101
  2. CHEMOTHERAPY [Suspect]
     Dates: start: 20100601
  3. NEXIUM [Concomitant]
     Route: 048

REACTIONS (13)
  - ANAEMIA [None]
  - ASTHENIA [None]
  - COLECTOMY [None]
  - COLON CANCER [None]
  - DIZZINESS [None]
  - HAEMATOCHEZIA [None]
  - HAEMORRHAGE [None]
  - HEADACHE [None]
  - MALAISE [None]
  - METASTASES TO LYMPH NODES [None]
  - NAUSEA [None]
  - PRESYNCOPE [None]
  - VOMITING [None]
